FAERS Safety Report 6239639-X (Version None)
Quarter: 2009Q2

REPORT INFORMATION
  Report Type: 
  Country: None (occurrence: None)
  Receive Date: 20090619
  Receipt Date: 20090605
  Transmission Date: 20091009
  Serious: No
  Sender: FDA-Public Use
  Company Number: 006756

PATIENT
  Age: 3 Year

DRUGS (5)
  1. BUSULFEX [Suspect]
     Indication: STEM CELL TRANSPLANT
     Dosage: 16 MG/KG, UNKNOWN
  2. CYCLOPHOSPHAMIDE [Concomitant]
  3. CYCLOSPORINE [Concomitant]
  4. CO-TRIMOXAZOLE (SULFAMETHASONE, TRIMETHOPRIM) [Concomitant]
  5. ITRACONAZOLE [Concomitant]

REACTIONS (1)
  - ANTI-THYROID ANTIBODY POSITIVE [None]
